FAERS Safety Report 8257729-7 (Version None)
Quarter: 2012Q2

REPORT INFORMATION
  Report Type: 
  Country: None (occurrence: None)
  Receive Date: 20120404
  Receipt Date: 20120322
  Transmission Date: 20120825
  Serious: Yes (Hospitalization, Other)
  Sender: FDA-Public Use
  Company Number: BR-AMGEN-BRASP2012019745

PATIENT
  Age: 76 Year
  Sex: Female
  Weight: 54 kg

DRUGS (7)
  1. EXELON [Concomitant]
     Dosage: UNK UNK, UNK
  2. DIPYRONE TAB [Concomitant]
     Dosage: UNK
  3. AMLODIPINE [Concomitant]
     Dosage: STRENGTH 5MG
  4. ENBREL [Suspect]
     Indication: RHEUMATOID ARTHRITIS
     Dosage: 50 MG, ONCE WEEKLY (SOLUTION FOR INJECTION IN PRE-FILLED PEN FOR 4 MONTHS)
     Route: 058
     Dates: start: 20090601, end: 20120101
  5. ENALAPRIL [Concomitant]
     Dosage: STRENGTH 20MG
  6. TRAMADOL HYDROCHLORIDE [Concomitant]
     Dosage: UNK
  7. PHENYTOIN [Concomitant]
     Dosage: UNK

REACTIONS (2)
  - HYPERTENSION [None]
  - HAEMORRHAGIC STROKE [None]
